FAERS Safety Report 13649976 (Version 1)
Quarter: 2017Q2

REPORT INFORMATION
  Report Type: Spontaneous
  Country: US (occurrence: US)
  Receive Date: 20170613
  Receipt Date: 20170613
  Transmission Date: 20170830
  Serious: Yes (Hospitalization)
  Sender: FDA-Public Use
  Company Number: None

PATIENT
  Age: 65 Year
  Sex: Female

DRUGS (21)
  1. ASPIRIN. [Concomitant]
     Active Substance: ASPIRIN
  2. OMEPRAZOLE. [Concomitant]
     Active Substance: OMEPRAZOLE
  3. POT CL MICRO [Concomitant]
  4. CONTOUR TES NEXT [Concomitant]
  5. STOOL SOFTNR [Concomitant]
  6. FAMOTIDINE. [Concomitant]
     Active Substance: FAMOTIDINE
  7. IRON [Concomitant]
     Active Substance: IRON
  8. VSL#3 [Concomitant]
     Active Substance: PROBIOTICS NOS
  9. ZANTAC [Concomitant]
     Active Substance: RANITIDINE HYDROCHLORIDE
  10. OFLOXACIN. [Concomitant]
     Active Substance: OFLOXACIN
  11. ALLOPURINOL. [Concomitant]
     Active Substance: ALLOPURINOL
  12. FENOFIBRATE. [Concomitant]
     Active Substance: FENOFIBRATE
  13. GILENYA [Suspect]
     Active Substance: FINGOLIMOD HYDROCHLORIDE
     Indication: MULTIPLE SCLEROSIS
     Route: 048
     Dates: start: 20131115
  14. CIPROFLOXACIN. [Concomitant]
     Active Substance: CIPROFLOXACIN
  15. LEVOTHYROXIN [Concomitant]
     Active Substance: LEVOTHYROXINE
  16. TORSEMIDE. [Concomitant]
     Active Substance: TORSEMIDE
  17. CALCIUM +D [Concomitant]
     Active Substance: CALCIUM\VITAMIN D
  18. AMOX/K CLAV [Concomitant]
     Active Substance: AMOXICILLIN\CLAVULANATE POTASSIUM
  19. LYRICA [Concomitant]
     Active Substance: PREGABALIN
  20. ATENOLOL. [Concomitant]
     Active Substance: ATENOLOL
  21. GLYBURIDE. [Concomitant]
     Active Substance: GLYBURIDE

REACTIONS (1)
  - Pneumonia aspiration [None]

NARRATIVE: CASE EVENT DATE: 20170529
